FAERS Safety Report 9012309 (Version 1)
Quarter: 2012Q4

REPORT INFORMATION
  Report Type: Spontaneous
  Country: US (occurrence: None)
  Receive Date: 20121231
  Receipt Date: 20121231
  Transmission Date: 20130627
  Serious: Yes (Death, Hospitalization, Other)
  Sender: FDA-Public Use
  Company Number: 2012P1067901

PATIENT
  Age: 63 Year
  Sex: Female
  Weight: 113 kg

DRUGS (4)
  1. CLINDAMYCIN [Suspect]
     Indication: SEPTIC ARTHRITIS STAPHYLOCOCCAL
  2. LEVOTHYROXINE [Concomitant]
  3. ATORVASTATION [Concomitant]
  4. ACETAMINOPHEN-HYDROCODONE [Concomitant]

REACTIONS (7)
  - Renal failure acute [None]
  - Pancreatitis [None]
  - Nephritis allergic [None]
  - Metabolic acidosis [None]
  - Multi-organ failure [None]
  - Drug reaction with eosinophilia and systemic symptoms [None]
  - Glomerulonephritis [None]
